FAERS Safety Report 19214888 (Version 1)
Quarter: 2021Q2

REPORT INFORMATION
  Report Type: Report from Study
  Country: PE (occurrence: PE)
  Receive Date: 20210504
  Receipt Date: 20210504
  Transmission Date: 20210717
  Serious: Yes (Other)
  Sender: FDA-Public Use
  Company Number: PE-SEATTLE GENETICS-2021SGN02422

PATIENT
  Age: 33 Year
  Sex: Female

DRUGS (1)
  1. BRENTUXIMAB VEDOTIN?MPI [Suspect]
     Active Substance: BRENTUXIMAB VEDOTIN
     Indication: HODGKIN^S DISEASE
     Dosage: 100 MG
     Route: 042
     Dates: start: 20210206

REACTIONS (2)
  - Neoplasm [Unknown]
  - Hepatitis [Unknown]

NARRATIVE: CASE EVENT DATE: 202104
